FAERS Safety Report 18988025 (Version 4)
Quarter: 2021Q4

REPORT INFORMATION
  Report Type: Spontaneous
  Country: GB (occurrence: GB)
  Receive Date: 20210309
  Receipt Date: 20211011
  Transmission Date: 20220304
  Serious: Yes (Other)
  Sender: FDA-Public Use
  Company Number: None

PATIENT
  Sex: Female

DRUGS (5)
  1. DEXAMETHASONE [Suspect]
     Active Substance: DEXAMETHASONE
     Indication: Plasma cell myeloma
     Dosage: UNK
     Route: 065
     Dates: start: 20180911
  2. REVLIMID [Suspect]
     Active Substance: LENALIDOMIDE
     Indication: Plasma cell myeloma
     Dosage: UNK
     Route: 065
     Dates: start: 20180911
  3. REVLIMID [Suspect]
     Active Substance: LENALIDOMIDE
     Dosage: 20 MG
     Route: 065
  4. IXAZOMIB [Suspect]
     Active Substance: IXAZOMIB
     Indication: Plasma cell myeloma
     Dosage: 4 MG
     Route: 048
     Dates: start: 20180911
  5. IXAZOMIB [Suspect]
     Active Substance: IXAZOMIB
     Dosage: 4 MG
     Route: 048
     Dates: start: 20180918

REACTIONS (10)
  - Neutropenia [Unknown]
  - Liver injury [Unknown]
  - Paraproteinaemia [Unknown]
  - Alanine aminotransferase increased [Unknown]
  - Localised infection [Unknown]
  - Arthralgia [Unknown]
  - Osteoarthritis [Unknown]
  - Influenza like illness [Unknown]
  - C-reactive protein increased [Unknown]
  - Blood potassium decreased [Unknown]

NARRATIVE: CASE EVENT DATE: 20210208
